FAERS Safety Report 10022982 (Version 2)
Quarter: 2014Q2

REPORT INFORMATION
  Report Type: Report from Study
  Country: US (occurrence: US)
  Receive Date: 20140319
  Receipt Date: 20140407
  Transmission Date: 20141212
  Serious: Yes (Disabling)
  Sender: FDA-Public Use
  Company Number: US-EXELIXIS-XL18414004095

PATIENT
  Age: 76 Year
  Sex: Male
  Weight: 68.12 kg

DRUGS (15)
  1. XL184 [Suspect]
     Indication: PROSTATE CANCER
     Dosage: 60 MG, QD
     Route: 048
     Dates: start: 20130930
  2. XL184 [Suspect]
     Dosage: 40 MG, QD
     Route: 048
     Dates: end: 20140227
  3. XL184 [Suspect]
     Indication: PROSTATE CANCER
     Dosage: 5 MG, BID
     Route: 048
     Dates: start: 20130930, end: 20140227
  4. CALCIUM CITRATE [Concomitant]
  5. RAPAFLO [Concomitant]
  6. UROXATRAL [Concomitant]
  7. METFORMIN [Concomitant]
  8. VITAMIN B COMPLEX [Concomitant]
  9. VITAMIN C [Concomitant]
  10. MULTIVITAMIN [Concomitant]
  11. OMEGA-3 [Concomitant]
  12. GARLIC [Concomitant]
  13. DIOVAN HCT [Concomitant]
  14. ONDANSETRON [Concomitant]
  15. XGEVA [Concomitant]

REACTIONS (1)
  - Anaemia [Not Recovered/Not Resolved]
